FAERS Safety Report 9915359 (Version 1)
Quarter: 2014Q1

REPORT INFORMATION
  Report Type: Spontaneous
  Country: ES (occurrence: ES)
  Receive Date: 20140221
  Receipt Date: 20140221
  Transmission Date: 20141002
  Serious: Yes (Congenital Anomaly)
  Sender: FDA-Public Use
  Company Number: ES-BIOGENIDEC-2014BI017023

PATIENT
  Sex: Male
  Weight: 3 kg

DRUGS (1)
  1. TYSABRI [Suspect]
     Indication: MATERNAL EXPOSURE TIMING UNSPECIFIED
     Route: 064
     Dates: end: 20130131

REACTIONS (1)
  - Syndactyly [Not Recovered/Not Resolved]
